FAERS Safety Report 4385702-8 (Version None)
Quarter: 2004Q2

REPORT INFORMATION
  Report Type: 
  Country: None (occurrence: None)
  Receive Date: 20040625
  Receipt Date: 20040625
  Transmission Date: 20050107
  Serious: Yes (Hospitalization)
  Sender: FDA-Public Use
  Company Number: None

PATIENT
  Age: 67 Year
  Sex: Female

DRUGS (1)
  1. ALEVE [Suspect]
     Indication: BACK PAIN
     Dosage: 4 TABLETS 3-4X WEEK PO
     Route: 048

REACTIONS (4)
  - CALCULUS URINARY [None]
  - GASTROINTESTINAL HAEMORRHAGE [None]
  - PANCREATITIS [None]
  - PELVI-URETERIC OBSTRUCTION [None]
